FAERS Safety Report 15266324 (Version 2)
Quarter: 2018Q3

REPORT INFORMATION
  Report Type: Spontaneous
  Country: US (occurrence: US)
  Receive Date: 20180810
  Receipt Date: 20180829
  Transmission Date: 20181010
  Serious: Yes (Other)
  Sender: FDA-Public Use
  Company Number: US-TARO-2018TAR00569

PATIENT
  Sex: Male

DRUGS (3)
  1. DICLOFENAC SODIUM GEL 3% [Suspect]
     Active Substance: DICLOFENAC SODIUM
     Indication: ACTINIC KERATOSIS
     Dosage: 6X/2 WEEKS
     Route: 061
     Dates: start: 201802, end: 201802
  2. DICLOFENAC SODIUM GEL 3% [Suspect]
     Active Substance: DICLOFENAC SODIUM
     Indication: POROKERATOSIS
     Dosage: 1X/DAY
     Route: 061
     Dates: start: 20171119, end: 201712
  3. DICLOFENAC SODIUM GEL 3% [Suspect]
     Active Substance: DICLOFENAC SODIUM
     Dosage: 6X/2 WEEKS
     Route: 061
     Dates: start: 201803, end: 201803

REACTIONS (4)
  - Renal failure [Recovering/Resolving]
  - Night sweats [Unknown]
  - Waldenstrom^s macroglobulinaemia [Not Recovered/Not Resolved]
  - Fatigue [Unknown]

NARRATIVE: CASE EVENT DATE: 2018
